FAERS Safety Report 25048188 (Version 1)
Quarter: 2025Q1

REPORT INFORMATION
  Report Type: Spontaneous
  Country: US (occurrence: US)
  Receive Date: 20250306
  Receipt Date: 20250306
  Transmission Date: 20250409
  Serious: No
  Sender: ALMUS
  Company Number: US-ALMIRALL-US-2025-0571

PATIENT
  Sex: Female

DRUGS (2)
  1. KLISYRI [Suspect]
     Active Substance: TIRBANIBULIN
     Indication: Actinic keratosis
     Route: 061
     Dates: start: 20250106
  2. RETIN-A [Concomitant]
     Active Substance: TRETINOIN
     Route: 061

REACTIONS (1)
  - Therapeutic product effect incomplete [Unknown]
